FAERS Safety Report 16249624 (Version 2)
Quarter: 2019Q2

REPORT INFORMATION
  Report Type: Spontaneous
  Country: US (occurrence: US)
  Receive Date: 20190429
  Receipt Date: 20190508
  Transmission Date: 20190711
  Serious: Yes (Other)
  Sender: FDA-Public Use
  Company Number: US-BEH-2019101580

PATIENT
  Age: 48 Year
  Sex: Female

DRUGS (13)
  1. HIZENTRA [Suspect]
     Active Substance: HUMAN IMMUNOGLOBULIN G
     Indication: DRUG THERAPY
     Dosage: 10 G, EVERY 7 DAYS, 3 SITES
     Route: 058
     Dates: start: 201809
  2. GABAPENTIN. [Concomitant]
     Active Substance: GABAPENTIN
  3. PANTOPRAZOLE [Concomitant]
     Active Substance: PANTOPRAZOLE
  4. TRAZODONE HYDROCHLORIDE. [Concomitant]
     Active Substance: TRAZODONE HYDROCHLORIDE
  5. VALACYCLOVIR [Concomitant]
     Active Substance: VALACYCLOVIR HYDROCHLORIDE
  6. HIZENTRA [Suspect]
     Active Substance: HUMAN IMMUNOGLOBULIN G
     Dosage: UNK
     Route: 058
  7. RANEXA [Concomitant]
     Active Substance: RANOLAZINE
  8. ROSUVASTATIN. [Concomitant]
     Active Substance: ROSUVASTATIN
  9. CLINDAMYCIN HCL [Concomitant]
     Active Substance: CLINDAMYCIN HYDROCHLORIDE
  10. VOLTAREN [Concomitant]
     Active Substance: DICLOFENAC SODIUM
  11. LISINOPRIL. [Concomitant]
     Active Substance: LISINOPRIL
  12. CLOPIDOGREL [Concomitant]
     Active Substance: CLOPIDOGREL BISULFATE
  13. MAGNESIUM [Concomitant]
     Active Substance: MAGNESIUM

REACTIONS (6)
  - Pneumonia [Unknown]
  - Rheumatoid arthritis [Unknown]
  - Arthritis [Unknown]
  - Aphonia [Unknown]
  - Fatigue [Unknown]
  - Muscle spasms [Unknown]

NARRATIVE: CASE EVENT DATE: 201904
